FAERS Safety Report 6758763-6 (Version None)
Quarter: 2010Q2

REPORT INFORMATION
  Report Type: 
  Country: None (occurrence: None)
  Receive Date: 20100607
  Receipt Date: 20100531
  Transmission Date: 20101027
  Serious: Yes (Other)
  Sender: FDA-Public Use
  Company Number: IR-ROCHE-706362

PATIENT
  Age: 32 Year
  Sex: Female

DRUGS (1)
  1. MIRCERA [Suspect]
     Dosage: FREQUENCY: MONTHLY, FORM: INFUSION.
     Route: 042
     Dates: start: 20100427

REACTIONS (3)
  - ANAEMIA [None]
  - PAPILLOEDEMA [None]
  - VISUAL IMPAIRMENT [None]
